FAERS Safety Report 24350521 (Version 1)
Quarter: 2024Q3

REPORT INFORMATION
  Report Type: Spontaneous
  Country: US (occurrence: None)
  Receive Date: 20240920
  Receipt Date: 20240920
  Transmission Date: 20241017
  Serious: No
  Sender: Public
  Company Number: None

PATIENT
  Sex: Female

DRUGS (4)
  1. LENALIDOMIDE [Suspect]
     Active Substance: LENALIDOMIDE
     Route: 048
     Dates: start: 202406
  2. VELCADE [Suspect]
     Active Substance: BORTEZOMIB
  3. DARZALEX [Suspect]
     Active Substance: DARATUMUMAB
  4. DEXAMETHASONE [Suspect]
     Active Substance: DEXAMETHASONE

REACTIONS (3)
  - Therapy interrupted [None]
  - Hyperhidrosis [None]
  - Palpitations [None]
